FAERS Safety Report 10187333 (Version 1)
Quarter: 2014Q2

REPORT INFORMATION
  Report Type: Spontaneous
  Country: US (occurrence: US)
  Receive Date: 20140522
  Receipt Date: 20140522
  Transmission Date: 20141212
  Serious: No
  Sender: FDA-Public Use
  Company Number: US-PFIZER INC-2014136319

PATIENT
  Age: 47 Year
  Sex: Female
  Weight: 94.79 kg

DRUGS (5)
  1. LYRICA [Suspect]
     Indication: FIBROMYALGIA
     Dosage: 50 MG, 2X/DAY
     Dates: start: 201403
  2. LYRICA [Suspect]
     Dosage: 50 MG, DAILY
     Dates: start: 201404
  3. LOSARTAN [Concomitant]
     Indication: HYPERTENSION
     Dosage: 100 MG, DAILY
  4. VERAPAMIL ER [Concomitant]
     Indication: HYPERTENSION
     Dosage: 100 MG, DAILY
  5. LEXAPRO [Concomitant]
     Indication: DEPRESSION
     Dosage: 20 MG, DAILY

REACTIONS (2)
  - Peripheral swelling [Recovering/Resolving]
  - Weight increased [Unknown]
